FAERS Safety Report 10034137 (Version 1)
Quarter: 2014Q1

REPORT INFORMATION
  Report Type: Spontaneous
  Country: US (occurrence: None)
  Receive Date: 20140324
  Receipt Date: 20140324
  Transmission Date: 20141002
  Serious: Yes (Life-Threatening, Other)
  Sender: FDA-Public Use
  Company Number: None

PATIENT
  Age: 34 Year
  Sex: Female
  Weight: 81.65 kg

DRUGS (1)
  1. MIRENA [Suspect]

REACTIONS (10)
  - Pain [None]
  - Alopecia [None]
  - Aggression [None]
  - Weight increased [None]
  - Ovarian cyst [None]
  - Breast enlargement [None]
  - Hirsutism [None]
  - Alopecia [None]
  - Vaginal infection [None]
  - Acne [None]
